FAERS Safety Report 6585302-5 (Version None)
Quarter: 2010Q1

REPORT INFORMATION
  Report Type: 
  Country: None (occurrence: None)
  Receive Date: 20100216
  Receipt Date: 20100216
  Transmission Date: 20100710
  Serious: Yes (Life-Threatening, Hospitalization)
  Sender: FDA-Public Use
  Company Number: None

PATIENT
  Age: 62 Year
  Sex: Male
  Weight: 98.4 kg

DRUGS (2)
  1. MORPHINE [Suspect]
     Indication: PAIN
     Dosage: 1 MG PRN IV
     Route: 042
     Dates: start: 20100203, end: 20100204
  2. FENTANYL-100 [Suspect]
     Indication: PAIN
     Dosage: 250 MCG ONCE IV
     Route: 042
     Dates: start: 20100203, end: 20100203

REACTIONS (3)
  - CYANOSIS [None]
  - RESPIRATORY DEPRESSION [None]
  - RESPIRATORY DISTRESS [None]
